FAERS Safety Report 5022278-6 (Version None)
Quarter: 2006Q2

REPORT INFORMATION
  Report Type: 
  Country: None (occurrence: None)
  Receive Date: 20060609
  Receipt Date: 20060605
  Transmission Date: 20061013
  Serious: Yes (Congenital Anomaly)
  Sender: FDA-Public Use
  Company Number: US-GLAXOSMITHKLINE-A0608354A

PATIENT
  Sex: Female
  Weight: 3.4 kg

DRUGS (1)
  1. LAMICTAL [Suspect]
     Indication: MATERNAL CONDITION AFFECTING FOETUS

REACTIONS (4)
  - DRUG EXPOSURE DURING PREGNANCY [None]
  - DRUG EXPOSURE VIA BREAST MILK [None]
  - HAEMANGIOMA [None]
  - HAEMANGIOMA CONGENITAL [None]
